FAERS Safety Report 17688826 (Version 1)
Quarter: 2020Q2

REPORT INFORMATION
  Report Type: Spontaneous
  Country: US (occurrence: US)
  Receive Date: 20200418
  Receipt Date: 20200418
  Transmission Date: 20200714
  Serious: Yes (Hospitalization)
  Sender: FDA-Public Use
  Company Number: None

PATIENT
  Age: 46 Year
  Sex: Male
  Weight: 73.8 kg

DRUGS (8)
  1. DAUNORUBICIN [Suspect]
     Active Substance: DAUNORUBICIN
     Dates: end: 20200224
  2. CYCLOPHOSPHAMIDE. [Suspect]
     Active Substance: CYCLOPHOSPHAMIDE
     Dates: end: 20200302
  3. METHOTREXATE. [Suspect]
     Active Substance: METHOTREXATE
     Dates: end: 20200203
  4. MERCAPTOPURINE. [Suspect]
     Active Substance: MERCAPTOPURINE
     Dates: end: 20200312
  5. VINCRISTINE SULFATE. [Suspect]
     Active Substance: VINCRISTINE SULFATE
     Dates: end: 20200224
  6. CYTARABINE. [Suspect]
     Active Substance: CYTARABINE
     Dates: end: 20200312
  7. RITUXIMAB (MOAB C2B8 ANTI CD20 CHIMERIC) [Suspect]
     Active Substance: RITUXIMAB
     Dates: end: 20200210
  8. DEXAMETHASONE. [Suspect]
     Active Substance: DEXAMETHASONE
     Dates: end: 20200223

REACTIONS (7)
  - Escherichia infection [None]
  - Colitis [None]
  - Urinary tract infection [None]
  - Abdominal pain [None]
  - Febrile neutropenia [None]
  - Enteritis [None]
  - Blood pressure increased [None]

NARRATIVE: CASE EVENT DATE: 20200310
